FAERS Safety Report 4517040-4 (Version None)
Quarter: 2005Q1

REPORT INFORMATION
  Report Type: 
  Country: None (occurrence: None)
  Receive Date: 20041029
  Receipt Date: 20040804
  Transmission Date: 20050727
  Serious: No
  Sender: FDA-Public Use
  Company Number: 2004-120795-NL

PATIENT
  Age: 31 Year
  Sex: Female
  Weight: 113.4 kg

DRUGS (4)
  1. NUVARING [Suspect]
     Indication: CONTRACEPTION
     Dosage: DF DAILY VAGINAL
     Route: 067
     Dates: start: 20040802
  2. NUVARING [Suspect]
     Indication: DYSMENORRHOEA
     Dosage: DF DAILY VAGINAL
     Route: 067
     Dates: start: 20040802
  3. NUVARING [Suspect]
     Indication: MENORRHAGIA
     Dosage: DF DAILY VAGINAL
     Route: 067
     Dates: start: 20040802
  4. CALCIUM SUPPLEMENT [Concomitant]

REACTIONS (1)
  - MENSTRUAL DISORDER [None]
